FAERS Safety Report 18652455 (Version 1)
Quarter: 2020Q4

REPORT INFORMATION
  Report Type: Report from Study
  Country: None (occurrence: JP)
  Receive Date: 20201223
  Receipt Date: 20201223
  Transmission Date: 20210114
  Serious: Yes (Other)
  Sender: FDA-Public Use
  Company Number: JP-ABBVIE-20P-087-3682244-00

PATIENT
  Age: 60 Year
  Sex: Male
  Weight: 75.8 kg

DRUGS (11)
  1. MOHRUS L [Concomitant]
     Active Substance: KETOPROFEN
     Indication: ARTHRALGIA
     Dosage: 40 MILLIGRAM?TAPE (INCLUDING POULTICE)
     Route: 065
  2. CHAMPIX [Concomitant]
     Active Substance: VARENICLINE TARTRATE
     Indication: NICOTINE DEPENDENCE
     Dosage: UNK
     Route: 065
     Dates: start: 20171017, end: 20171031
  3. CHAMPIX [Concomitant]
     Active Substance: VARENICLINE TARTRATE
     Dosage: 0.5 MILLIGRAM
     Route: 065
     Dates: start: 20171031, end: 20171102
  4. CHAMPIX [Concomitant]
     Active Substance: VARENICLINE TARTRATE
     Dosage: 1 MILLIGRAM
     Route: 065
     Dates: start: 20171103, end: 20171106
  5. LEUPLIN [Suspect]
     Active Substance: LEUPROLIDE ACETATE
     Indication: BULBOSPINAL MUSCULAR ATROPHY CONGENITAL
     Dosage: 11.25 MILLIGRAM, Q3MONTHS
     Route: 058
     Dates: start: 20171030
  6. AMLODIPINE [Concomitant]
     Active Substance: AMLODIPINE BESYLATE
     Indication: PRODUCT USED FOR UNKNOWN INDICATION
     Dosage: 5 MILLIGRAM
     Route: 065
  7. TAMIFLU [Concomitant]
     Active Substance: OSELTAMIVIR PHOSPHATE
     Indication: PRODUCT USED FOR UNKNOWN INDICATION
     Dosage: 75 MILLIGRAM
     Route: 065
     Dates: start: 20190202, end: 20190211
  8. MEVALOTIN [Concomitant]
     Active Substance: PRAVASTATIN SODIUM
     Indication: PRODUCT USED FOR UNKNOWN INDICATION
     Dosage: 5 MILLIGRAM
     Route: 065
  9. METHADERM [Concomitant]
     Active Substance: DEXAMETHASONE DIPROPIONATE
     Indication: ECZEMA
     Dosage: 10 GRAM
     Route: 065
     Dates: start: 20180604, end: 20190103
  10. CHAMPIX [Concomitant]
     Active Substance: VARENICLINE TARTRATE
     Dosage: 2 MILLIGRAM
     Route: 065
     Dates: start: 20171107, end: 20180114
  11. INAVIR [Concomitant]
     Indication: PRODUCT USED FOR UNKNOWN INDICATION
     Dosage: 40 MILLIGRAM?POWDER EXCEPT DPO
     Route: 065
     Dates: start: 20180416, end: 20180416

REACTIONS (6)
  - Injection site induration [Unknown]
  - Administration site ulcer [Recovering/Resolving]
  - Erythema [Unknown]
  - Rash [Not Recovered/Not Resolved]
  - Skin erosion [Unknown]
  - Injection site induration [Unknown]

NARRATIVE: CASE EVENT DATE: 20180122
